FAERS Safety Report 4846011-3 (Version None)
Quarter: 2005Q4

REPORT INFORMATION
  Report Type: 
  Country: None (occurrence: None)
  Receive Date: 20051201
  Receipt Date: 20051117
  Transmission Date: 20060501
  Serious: Yes (Death)
  Sender: FDA-Public Use
  Company Number: MK200511-0221-1

PATIENT
  Age: 83 Year
  Sex: Female

DRUGS (2)
  1. TECHNESCAN LYOMAA (LSI) [Suspect]
     Indication: VENTILATION/PERFUSION SCAN
     Dosage: 100 MBQ, SINGLE USE
     Dates: start: 20051109, end: 20051109
  2. CHEMOTHERAPY AND INHALERS [Concomitant]

REACTIONS (2)
  - CARDIAC ARREST [None]
  - PROCEDURAL COMPLICATION [None]
